FAERS Safety Report 20369490 (Version 1)
Quarter: 2022Q1

REPORT INFORMATION
  Report Type: Spontaneous
  Country: US (occurrence: None)
  Receive Date: 20220124
  Receipt Date: 20220124
  Transmission Date: 20220423
  Serious: Yes (Death)
  Sender: FDA-Public Use
  Company Number: None

PATIENT
  Age: 67 Year
  Sex: Male
  Weight: 87 kg

DRUGS (1)
  1. TOCILIZUMAB [Suspect]
     Active Substance: TOCILIZUMAB
     Dosage: 700 MG   ONCE IV?
     Route: 042
     Dates: start: 20220119, end: 20220119

REACTIONS (8)
  - Sedation [None]
  - Hypotension [None]
  - Hyperglycaemia [None]
  - Acute kidney injury [None]
  - Respiratory depression [None]
  - Electrocardiogram QRS complex prolonged [None]
  - Pulse absent [None]
  - Oxygen saturation decreased [None]

NARRATIVE: CASE EVENT DATE: 20220120
